FAERS Safety Report 10541092 (Version 1)
Quarter: 2014Q4

REPORT INFORMATION
  Report Type: Spontaneous
  Country: US (occurrence: US)
  Receive Date: 20141024
  Receipt Date: 20141024
  Transmission Date: 20150529
  Serious: No
  Sender: FDA-Public Use
  Company Number: US-009507513-1410USA012222

PATIENT
  Age: 91 Year
  Sex: Female

DRUGS (2)
  1. A AND D [Suspect]
     Active Substance: DIMETHICONE\PETROLATUM\ZINC OXIDE
     Indication: PAPULE
     Dosage: UNK, UNKNOWN
     Route: 061
  2. A AND D [Suspect]
     Active Substance: DIMETHICONE\PETROLATUM\ZINC OXIDE
     Indication: RASH

REACTIONS (1)
  - Drug effect decreased [Unknown]
